FAERS Safety Report 8149651-1 (Version None)
Quarter: 2012Q1

REPORT INFORMATION
  Report Type: 
  Country: None (occurrence: None)
  Receive Date: 20120218
  Receipt Date: 20111110
  Transmission Date: 20120608
  Serious: No
  Sender: FDA-Public Use
  Company Number: US-ALLERGAN-1114825US

PATIENT
  Age: 37 Year
  Sex: Female

DRUGS (2)
  1. BOTOX COSMETIC [Suspect]
     Dosage: UNK
     Route: 030
     Dates: start: 20110601, end: 20110601
  2. BOTOX COSMETIC [Suspect]
     Indication: SKIN WRINKLING
     Dosage: UNK
     Route: 030
     Dates: start: 20110801, end: 20110801

REACTIONS (3)
  - INJECTION SITE SWELLING [None]
  - INJECTION SITE RASH [None]
  - GENERALISED ERYTHEMA [None]
